FAERS Safety Report 17859181 (Version 1)
Quarter: 2020Q2

REPORT INFORMATION
  Report Type: Report from Study
  Country: US (occurrence: US)
  Receive Date: 20200604
  Receipt Date: 20200604
  Transmission Date: 20200714
  Serious: Yes (Hospitalization)
  Sender: FDA-Public Use
  Company Number: NVSC2020US151258

PATIENT
  Sex: Male

DRUGS (1)
  1. ENTRESTO [Suspect]
     Active Substance: SACUBITRIL\VALSARTAN
     Indication: PRODUCT USED FOR UNKNOWN INDICATION
     Dosage: 1 DF (24MG/26MG)
     Route: 048

REACTIONS (5)
  - Gait disturbance [Unknown]
  - Complication associated with device [Unknown]
  - Decreased activity [Unknown]
  - Arthralgia [Unknown]
  - Anxiety [Unknown]
